FAERS Safety Report 8791411 (Version 2)
Quarter: 2013Q1

REPORT INFORMATION
  Report Type: Spontaneous
  Country: DK (occurrence: None)
  Receive Date: 20120912
  Receipt Date: 20121231
  Transmission Date: 20140127
  Serious: Yes (Other)
  Sender: FDA-Public Use
  Company Number: 2012MA010850

PATIENT
  Age: 15 Year
  Sex: Female

DRUGS (4)
  1. CETIRIZINE HCL TABLETS 10MG, OTC (AELLC) (CETIRIZINE) [Suspect]
     Indication: SEASONAL ALLERGY
     Dosage: OCCASIONAL; PO
     Route: 048
  2. LAMICTAL (NO PREF. NAME) [Suspect]
     Indication: BIPOLAR DISORDER
     Route: 048
  3. ABILIFY [Suspect]
     Indication: BIPOLAR DISORDER
  4. NEXPLANON [Suspect]
     Indication: CONTRACEPTION
     Route: 059

REACTIONS (6)
  - Pregnancy test negative [None]
  - Haemorrhage [None]
  - Pregnancy with implant contraceptive [None]
  - Exposure during pregnancy [None]
  - Drug interaction [None]
  - Abortion spontaneous [None]
